FAERS Safety Report 9272125 (Version 1)
Quarter: 2013Q2

REPORT INFORMATION
  Report Type: Spontaneous
  Country: US (occurrence: US)
  Receive Date: 20130506
  Receipt Date: 20130506
  Transmission Date: 20140414
  Serious: Yes (Other)
  Sender: FDA-Public Use
  Company Number: US-AMGEN-USASP2013031079

PATIENT
  Age: 39 Year
  Sex: Female

DRUGS (1)
  1. ENBREL [Suspect]
     Indication: RHEUMATOID ARTHRITIS
     Dosage: 50 MG, QWK
     Dates: start: 1998

REACTIONS (7)
  - Tendon disorder [Recovered/Resolved]
  - Nodule [Recovered/Resolved]
  - Arthropathy [Recovered/Resolved]
  - Ligament disorder [Recovered/Resolved]
  - Cystitis [Not Recovered/Not Resolved]
  - Skin irritation [Not Recovered/Not Resolved]
  - Injection site pain [Not Recovered/Not Resolved]
